FAERS Safety Report 11218663 (Version 2)
Quarter: 2015Q2

REPORT INFORMATION
  Report Type: Report from Study
  Country: HN (occurrence: HN)
  Receive Date: 20150625
  Receipt Date: 20150629
  Transmission Date: 20150821
  Serious: Yes (Death, Hospitalization)
  Sender: FDA-Public Use
  Company Number: PHHY2015HN076440

PATIENT
  Age: 19 Year
  Sex: Male
  Weight: 93 kg

DRUGS (1)
  1. GLIVEC [Suspect]
     Active Substance: IMATINIB MESYLATE
     Indication: CHRONIC MYELOID LEUKAEMIA
     Dosage: 400 MG, QD
     Route: 048
     Dates: start: 20110823, end: 201506

REACTIONS (6)
  - Pyrexia [Fatal]
  - Blast crisis in myelogenous leukaemia [Fatal]
  - General physical health deterioration [Fatal]
  - Treatment failure [Unknown]
  - Splenomegaly [Fatal]
  - Therapeutic response decreased [Unknown]

NARRATIVE: CASE EVENT DATE: 201309
